FAERS Safety Report 11857070 (Version 1)
Quarter: 2015Q4

REPORT INFORMATION
  Report Type: Report from Study
  Country: NG (occurrence: NG)
  Receive Date: 20151221
  Receipt Date: 20151221
  Transmission Date: 20160305
  Serious: Yes (Death, Congenital Anomaly)
  Sender: FDA-Public Use
  Company Number: NG-009507513-1512NGA010372

PATIENT
  Age: 1 Day
  Sex: Female

DRUGS (8)
  1. COMBIVIR [Suspect]
     Active Substance: LAMIVUDINE\ZIDOVUDINE
     Dosage: UNK,  REGIMEN#1
     Route: 064
     Dates: start: 20111207
  2. TRUVADA [Suspect]
     Active Substance: EMTRICITABINE\TENOFOVIR DISOPROXIL FUMARATE
     Dosage: UNK,  REGIMEN#1
     Route: 064
     Dates: start: 20081205
  3. RALTEGRAVIR POTASSIUM [Suspect]
     Active Substance: RALTEGRAVIR POTASSIUM
     Dosage: 800 MG, QD
     Route: 064
     Dates: start: 20110304, end: 20111207
  4. KALETRA [Suspect]
     Active Substance: LOPINAVIR\RITONAVIR
     Dosage: UNK
     Route: 064
     Dates: start: 20110304
  5. SULFAMETHOXAZOLE (+) TRIMETHOPRIM [Concomitant]
     Active Substance: SULFAMETHOXAZOLE\TRIMETHOPRIM
     Dosage: UNK
     Dates: start: 20110304
  6. EFAVIRENZ [Suspect]
     Active Substance: EFAVIRENZ
     Dosage: UNK
     Route: 064
     Dates: start: 20081205
  7. FORTOVASE [Suspect]
     Active Substance: SAQUINAVIR
     Dosage: 1000MG, QD, REGIMEN#1
     Route: 064
     Dates: start: 20111207
  8. LOPINAVIR [Suspect]
     Active Substance: LOPINAVIR
     Dosage: UNK, REGIMEN#1
     Route: 064

REACTIONS (8)
  - Talipes [Unknown]
  - Hepatomegaly [Unknown]
  - Foetal exposure during pregnancy [Unknown]
  - Respiratory distress [Fatal]
  - Congenital eye disorder [Unknown]
  - Arachnodactyly [Unknown]
  - Splenomegaly [Unknown]
  - Trisomy 21 [Unknown]

NARRATIVE: CASE EVENT DATE: 201204
